FAERS Safety Report 25050431 (Version 1)
Quarter: 2025Q1

REPORT INFORMATION
  Report Type: Report from Study
  Country: US (occurrence: US)
  Receive Date: 20250307
  Receipt Date: 20250307
  Transmission Date: 20250409
  Serious: Yes (Other)
  Sender: MYLAN
  Company Number: US-MYLANLABS-2025M1019179

PATIENT

DRUGS (2)
  1. DOXORUBICIN [Suspect]
     Active Substance: DOXORUBICIN
     Indication: Hepatocellular carcinoma
  2. MITOMYCIN C [Suspect]
     Active Substance: MITOMYCIN
     Indication: Hepatocellular carcinoma

REACTIONS (1)
  - Hypertransaminasaemia [Unknown]
